FAERS Safety Report 18594629 (Version 1)
Quarter: 2020Q4

REPORT INFORMATION
  Report Type: Spontaneous
  Country: US (occurrence: US)
  Receive Date: 20201209
  Receipt Date: 20201209
  Transmission Date: 20210114
  Serious: Yes (Other)
  Sender: FDA-Public Use
  Company Number: US-SA-2020SA351448

PATIENT

DRUGS (2)
  1. HYDROCORTISONE. [Concomitant]
     Active Substance: HYDROCORTISONE
     Dosage: UNK
  2. DUPIXENT [Suspect]
     Active Substance: DUPILUMAB
     Dosage: UNK

REACTIONS (6)
  - Eosinophil count decreased [Unknown]
  - Musculoskeletal disorder [Recovering/Resolving]
  - Neuropathy peripheral [Unknown]
  - Eosinophil count increased [Unknown]
  - Burning sensation [Unknown]
  - Mononeuropathy multiplex [Unknown]
